FAERS Safety Report 12586578 (Version 5)
Quarter: 2016Q3

REPORT INFORMATION
  Report Type: Spontaneous
  Country: US (occurrence: US)
  Receive Date: 20160725
  Receipt Date: 20160830
  Transmission Date: 20161109
  Serious: No
  Sender: FDA-Public Use
  Company Number: US-PFIZER INC-2016326968

PATIENT
  Age: 50 Year
  Sex: Female
  Weight: 72.56 kg

DRUGS (4)
  1. PROMETHAZINE [Concomitant]
     Active Substance: PROMETHAZINE\PROMETHAZINE HYDROCHLORIDE
     Dosage: UNK
  2. SUTENT [Suspect]
     Active Substance: SUNITINIB MALATE
     Indication: GASTRIC CANCER
     Dosage: 50 MG, 1X/DAY
     Route: 048
     Dates: start: 201607, end: 20160814
  3. LISINOPRIL. [Concomitant]
     Active Substance: LISINOPRIL
     Dosage: UNK
  4. SUTENT [Suspect]
     Active Substance: SUNITINIB MALATE
     Indication: GASTROINTESTINAL STROMAL TUMOUR
     Dosage: 50 MG, CYCLIC (28 DAYS ON/14 DAYS OFF)
     Dates: start: 20160615

REACTIONS (17)
  - Diarrhoea [Unknown]
  - Decreased appetite [Unknown]
  - Weight decreased [Unknown]
  - Oral pain [Recovered/Resolved]
  - Abdominal distension [Unknown]
  - Dysgeusia [Unknown]
  - Food aversion [Unknown]
  - Blister [Recovering/Resolving]
  - Constipation [Unknown]
  - Ageusia [Unknown]
  - Fatigue [Unknown]
  - Abdominal pain upper [Unknown]
  - Oral discomfort [Recovered/Resolved]
  - Nausea [Unknown]
  - Chest pain [Unknown]
  - Tongue discomfort [Unknown]
  - Dumping syndrome [Unknown]

NARRATIVE: CASE EVENT DATE: 201608
